FAERS Safety Report 9304147 (Version 1)
Quarter: 2013Q2

REPORT INFORMATION
  Report Type: Spontaneous
  Country: US (occurrence: US)
  Receive Date: 20130522
  Receipt Date: 20130522
  Transmission Date: 20140414
  Serious: Yes (Hospitalization)
  Sender: FDA-Public Use
  Company Number: US-COVIDIEN/TYCO HEALTHCARE/MALLINCKRODT-T201301774

PATIENT
  Sex: Female

DRUGS (3)
  1. GABLOFEN [Suspect]
     Route: 037
  2. MORPHINE [Suspect]
     Indication: PAIN
     Dosage: 12 MG PER DAY
     Route: 037
  3. CLONIDINE [Suspect]
     Indication: PAIN
     Route: 037

REACTIONS (1)
  - Overdose [Unknown]
